FAERS Safety Report 9206790 (Version 1)
Quarter: 2013Q2

REPORT INFORMATION
  Report Type: Spontaneous
  Country: US (occurrence: US)
  Receive Date: 20130403
  Receipt Date: 20130403
  Transmission Date: 20140414
  Serious: Yes (Other)
  Sender: FDA-Public Use
  Company Number: US-SANOFI-AVENTIS-2013SA033961

PATIENT
  Age: 78 Year
  Sex: Female

DRUGS (1)
  1. PLAVIX [Suspect]

REACTIONS (6)
  - Splenic rupture [Unknown]
  - Haemorrhage [Unknown]
  - Skin discolouration [Unknown]
  - Breast disorder [Unknown]
  - Faeces discoloured [Unknown]
  - Flatulence [Unknown]
